FAERS Safety Report 5239702-6 (Version None)
Quarter: 2007Q1

REPORT INFORMATION
  Report Type: 
  Country: None (occurrence: None)
  Receive Date: 20070216
  Receipt Date: 20070206
  Transmission Date: 20070707
  Serious: Yes (Other)
  Sender: FDA-Public Use
  Company Number: JP-SANOFI-SYNTHELABO-A01200701140

PATIENT
  Age: 87 Year
  Sex: Female
  Weight: 45 kg

DRUGS (7)
  1. LAXOBERON [Concomitant]
     Indication: CONSTIPATION
     Dosage: 2.5 MG
     Route: 048
     Dates: start: 20050801
  2. OXYCONTIN [Concomitant]
     Indication: MULTIPLE MYELOMA
     Dosage: 5 MG
     Route: 048
     Dates: start: 20050701
  3. OMEPRAL [Concomitant]
     Indication: REFLUX OESOPHAGITIS
     Dosage: 20 MG
     Route: 048
     Dates: start: 20050301
  4. FRANDOL S [Concomitant]
     Indication: CARDIAC FAILURE
     Dosage: 40 MG
     Route: 065
  5. AMLODIN [Concomitant]
     Indication: HYPERTENSION
     Dosage: 2.5 MG
     Route: 048
  6. ZYLORIC [Concomitant]
     Indication: HYPERURICAEMIA
     Dosage: 50 MG
     Route: 048
     Dates: start: 20050301
  7. MYSLEE [Suspect]
     Indication: INSOMNIA
     Dosage: 5 MG
     Route: 048
     Dates: start: 20051001, end: 20061209

REACTIONS (1)
  - DELIRIUM [None]
